FAERS Safety Report 5514231-0 (Version None)
Quarter: 2007Q4

REPORT INFORMATION
  Report Type: 
  Country: None (occurrence: None)
  Receive Date: 20071031
  Receipt Date: 20070711
  Transmission Date: 20080405
  Serious: Yes (Other)
  Sender: FDA-Public Use
  Company Number: US020621

PATIENT
  Age: 47 Year
  Sex: Female

DRUGS (12)
  1. PROVIGIL [Suspect]
     Indication: SOMNOLENCE
     Dosage: 200 MG QD ORAL
     Route: 048
     Dates: start: 20050501, end: 20070710
  2. EFFEXOR [Concomitant]
  3. TRAZODONE HCL [Concomitant]
  4. LUNESTA [Concomitant]
  5. DICLOFENAC [Concomitant]
  6. ESTROGEN TROCHE [Concomitant]
  7. ZYRTEC [Concomitant]
  8. BUSPAR [Concomitant]
  9. RINOCORT [Concomitant]
  10. VITAMIN + MINERAL COMPLEX [Concomitant]
  11. GLUCOSAMINE [Concomitant]
  12. OMEGA 3 [Concomitant]

REACTIONS (1)
  - BLOOD CORTISOL INCREASED [None]
